FAERS Safety Report 5210741-4 (Version None)
Quarter: 2007Q1

REPORT INFORMATION
  Report Type: 
  Country: None (occurrence: None)
  Receive Date: 20070117
  Receipt Date: 20070108
  Transmission Date: 20070707
  Serious: Yes (Hospitalization)
  Sender: FDA-Public Use
  Company Number: CA-SANOFI-SYNTHELABO-A01200305072

PATIENT
  Age: 58 Year
  Sex: Female

DRUGS (14)
  1. FUROSEMIDE [Concomitant]
     Indication: DRUG USE FOR UNKNOWN INDICATION
     Route: 048
  2. PLAVIX [Interacting]
     Indication: THROMBOSIS PROPHYLAXIS
     Route: 048
     Dates: start: 20030901, end: 20031001
  3. PLAVIX [Interacting]
     Indication: CORONARY ARTERIAL STENT INSERTION
     Route: 048
     Dates: start: 20030901, end: 20031001
  4. PLAVIX [Interacting]
     Indication: MYOCARDIAL INFARCTION
     Route: 048
     Dates: start: 20030901, end: 20031001
  5. ASPIRIN [Concomitant]
     Indication: THROMBOSIS PROPHYLAXIS
     Dosage: UNK
     Route: 065
  6. IMURAN [Concomitant]
     Indication: HEART TRANSPLANT
     Route: 048
  7. IMURAN [Concomitant]
     Indication: IMMUNOSUPPRESSION
     Route: 048
  8. LIPITOR [Interacting]
     Indication: DYSLIPIDAEMIA
     Dosage: GRADUALLY TITRATED TO 80 MG DAILY OVER 15 MONTHS
     Route: 048
     Dates: start: 19970101, end: 20031001
  9. LIPITOR [Interacting]
     Indication: MYOCARDIAL INFARCTION
     Dosage: GRADUALLY TITRATED TO 80 MG DAILY OVER 15 MONTHS
     Route: 048
     Dates: start: 19970101, end: 20031001
  10. PREDNISONE [Concomitant]
     Indication: DRUG USE FOR UNKNOWN INDICATION
     Route: 065
  11. CYCLOSPORINE [Interacting]
     Indication: HEART TRANSPLANT
     Route: 048
     Dates: start: 19900101, end: 20031001
  12. CYCLOSPORINE [Interacting]
     Indication: IMMUNOSUPPRESSION
     Route: 048
     Dates: start: 19900101, end: 20031001
  13. LISINOPRIL [Concomitant]
     Indication: BLOOD PRESSURE INCREASED
     Route: 048
  14. APO-ALLOPURINOL [Suspect]
     Indication: GOUT
     Route: 048
     Dates: start: 19900301, end: 20031001

REACTIONS (2)
  - DRUG INTERACTION [None]
  - RHABDOMYOLYSIS [None]
